FAERS Safety Report 6821990-3 (Version None)
Quarter: 2010Q3

REPORT INFORMATION
  Report Type: 
  Country: None (occurrence: None)
  Receive Date: 20100707
  Receipt Date: 20100707
  Transmission Date: 20110219
  Serious: Yes (Hospitalization)
  Sender: FDA-Public Use
  Company Number: None

PATIENT
  Sex: Female
  Weight: 56.6 kg

DRUGS (7)
  1. METHOTREXATE [Suspect]
     Dosage: 45 MG
  2. THIOGUANINE [Suspect]
     Dosage: 1400 MG
  3. VINCRISTINE SULFATE [Suspect]
     Dosage: 10 MG
  4. CYCLOPHOSPHAMIDE [Suspect]
     Dosage: 1620 MG
  5. CYTARABINE [Suspect]
     Dosage: 976 MG
  6. DEXAMETHASONE ACETATE [Suspect]
     Dosage: 224 MG
  7. DOXORUBICIN HYDROCHLORIDE [Suspect]
     Dosage: 123 MG

REACTIONS (6)
  - BODY TEMPERATURE INCREASED [None]
  - CEREBRAL INFARCTION [None]
  - HEMIPARESIS [None]
  - NAUSEA [None]
  - PHOTOPHOBIA [None]
  - THERAPEUTIC AGENT TOXICITY [None]
